FAERS Safety Report 7068807-2 (Version None)
Quarter: 2010Q4

REPORT INFORMATION
  Report Type: 
  Country: None (occurrence: None)
  Receive Date: 20101028
  Receipt Date: 20101026
  Transmission Date: 20110411
  Serious: Yes (Life-Threatening)
  Sender: FDA-Public Use
  Company Number: US-MERCK-1008USA00343

PATIENT
  Age: 65 Year
  Sex: Male

DRUGS (2)
  1. PROPECIA [Suspect]
     Indication: ALOPECIA
     Route: 048
     Dates: start: 20040101, end: 20100501
  2. ROGAINE [Concomitant]
     Route: 065

REACTIONS (2)
  - FRACTURE [None]
  - PROSTATE CANCER METASTATIC [None]
